FAERS Safety Report 9228548 (Version 1)
Quarter: 2013Q2

REPORT INFORMATION
  Report Type: Report from Study
  Country: US (occurrence: US)
  Receive Date: 20130412
  Receipt Date: 20130412
  Transmission Date: 20140414
  Serious: Yes (Hospitalization, Other)
  Sender: FDA-Public Use
  Company Number: US-ABBOTT-13P-163-1073658-00

PATIENT
  Age: 68 Year
  Sex: Female
  Weight: 69.46 kg

DRUGS (6)
  1. HUMIRA [Suspect]
     Indication: RHEUMATOID ARTHRITIS
     Dates: start: 2011, end: 201201
  2. HUMIRA [Suspect]
     Dates: start: 201211, end: 201302
  3. METFORMIN [Concomitant]
     Indication: DIABETES MELLITUS
  4. GABAPENTIN [Concomitant]
     Indication: PAIN
  5. PLAVIX [Concomitant]
     Indication: ANTICOAGULANT THERAPY
  6. UNKNOWN STOOL SOFTENER [Concomitant]
     Indication: CONSTIPATION

REACTIONS (2)
  - Intervertebral disc protrusion [Recovered/Resolved]
  - Intervertebral disc protrusion [Unknown]
